FAERS Safety Report 12911989 (Version 5)
Quarter: 2017Q2

REPORT INFORMATION
  Report Type: Report from Study
  Country: GB (occurrence: GB)
  Receive Date: 20161104
  Receipt Date: 20170525
  Transmission Date: 20170830
  Serious: Yes (Hospitalization)
  Sender: FDA-Public Use
  Company Number: GB-TEVA-709841ACC

PATIENT
  Age: 51 Year
  Sex: Male

DRUGS (3)
  1. BENDAMUSTINE HYDROCHLORIDE. [Suspect]
     Active Substance: BENDAMUSTINE HYDROCHLORIDE
     Indication: NON-HODGKIN^S LYMPHOMA
     Dosage: OTHER (ONCE)
     Route: 042
     Dates: start: 20150729, end: 20151216
  2. IBRUTINIB [Suspect]
     Active Substance: IBRUTINIB
     Indication: NON-HODGKIN^S LYMPHOMA
     Dosage: 560 MILLIGRAM DAILY; (1 IN 1 DAY)
     Route: 048
     Dates: start: 20150729
  3. RITUXIMAB [Suspect]
     Active Substance: RITUXIMAB
     Indication: NON-HODGKIN^S LYMPHOMA
     Dosage: OTHER (ONCE)
     Route: 042
     Dates: start: 20150729, end: 20151216

REACTIONS (1)
  - Metaplasia [Recovered/Resolved with Sequelae]

NARRATIVE: CASE EVENT DATE: 20161018
